FAERS Safety Report 21968166 (Version 1)
Quarter: 2023Q1

REPORT INFORMATION
  Report Type: Spontaneous
  Country: CA (occurrence: CA)
  Receive Date: 20230208
  Receipt Date: 20230208
  Transmission Date: 20230418
  Serious: Yes (Life-Threatening, Other)
  Sender: FDA-Public Use
  Company Number: CA-TEVA-2023-CA-2851948

PATIENT
  Sex: Female
  Weight: 92 kg

DRUGS (15)
  1. PREDNISONE [Suspect]
     Active Substance: PREDNISONE
     Indication: Pneumonia bacterial
     Dosage: 12.5 MILLIGRAM DAILY;
     Route: 048
  2. PREDNISONE [Suspect]
     Active Substance: PREDNISONE
     Indication: Escherichia infection
     Dosage: 25 MILLIGRAM DAILY;
     Route: 048
  3. PREDNISONE [Suspect]
     Active Substance: PREDNISONE
     Route: 048
  4. AVENTYL [Concomitant]
     Active Substance: NORTRIPTYLINE HYDROCHLORIDE
     Indication: Product used for unknown indication
  5. AZITHROMYCIN [Concomitant]
     Active Substance: AZITHROMYCIN
     Indication: Product used for unknown indication
  6. CRESTOR [Concomitant]
     Active Substance: ROSUVASTATIN CALCIUM
     Indication: Product used for unknown indication
  7. DIAZEPAM [Concomitant]
     Active Substance: DIAZEPAM
     Indication: Product used for unknown indication
  8. EFFEXOR [Concomitant]
     Active Substance: VENLAFAXINE HYDROCHLORIDE
     Indication: Product used for unknown indication
  9. FELODIPINE [Concomitant]
     Active Substance: FELODIPINE
     Indication: Product used for unknown indication
  10. HYDROCHLOROTHIAZIDE [Concomitant]
     Active Substance: HYDROCHLOROTHIAZIDE
     Indication: Product used for unknown indication
  11. HYDROXYZINE [Concomitant]
     Active Substance: HYDROXYZINE HYDROCHLORIDE
     Indication: Product used for unknown indication
  12. IBSRELA [Concomitant]
     Active Substance: TENAPANOR HYDROCHLORIDE
     Indication: Product used for unknown indication
  13. MONTELUKAST [Concomitant]
     Active Substance: MONTELUKAST SODIUM
     Indication: Product used for unknown indication
  14. PRAMIPEXOLE [Concomitant]
     Active Substance: PRAMIPEXOLE
     Indication: Product used for unknown indication
  15. PREVACID [Concomitant]
     Active Substance: LANSOPRAZOLE
     Indication: Product used for unknown indication

REACTIONS (39)
  - Aggression [Unknown]
  - Amnesia [Unknown]
  - Anxiety [Unknown]
  - Arthralgia [Unknown]
  - Asthenia [Unknown]
  - Confusional state [Unknown]
  - Contusion [Unknown]
  - Crying [Unknown]
  - Delirium [Unknown]
  - Depression [Unknown]
  - Dizziness [Unknown]
  - Dry skin [Unknown]
  - Dyspepsia [Unknown]
  - Dysphagia [Unknown]
  - Dyspnoea [Unknown]
  - Exophthalmos [Unknown]
  - Glaucoma [Unknown]
  - Hallucination [Unknown]
  - Headache [Unknown]
  - Hyperhidrosis [Unknown]
  - Hypertension [Unknown]
  - Increased appetite [Unknown]
  - Insomnia [Unknown]
  - Mental disorder [Unknown]
  - Mood swings [Unknown]
  - Morbid thoughts [Unknown]
  - Nausea [Unknown]
  - Nervousness [Unknown]
  - Osteoporosis [Unknown]
  - Paranoia [Unknown]
  - Psychomotor hyperactivity [Unknown]
  - Psychotic disorder [Unknown]
  - Skin discolouration [Unknown]
  - Suicidal ideation [Unknown]
  - Swelling face [Unknown]
  - Vision blurred [Unknown]
  - Weight increased [Unknown]
  - Blood pressure increased [Unknown]
  - Heart rate increased [Unknown]
